FAERS Safety Report 12616522 (Version 2)
Quarter: 2016Q3

REPORT INFORMATION
  Report Type: Report from Study
  Country: US (occurrence: US)
  Receive Date: 20160802
  Receipt Date: 20160824
  Transmission Date: 20161109
  Serious: Yes (Hospitalization)
  Sender: FDA-Public Use
  Company Number: US-ACTELION-A-NJ2016-138799

PATIENT
  Age: 19 Year
  Sex: Male

DRUGS (6)
  1. REMODULIN [Concomitant]
     Active Substance: TREPROSTINIL
     Dosage: 123 NG/KG, PER MIN
     Dates: start: 20160622
  2. DIGOXIN. [Concomitant]
     Active Substance: DIGOXIN
     Dosage: 0.12 MG, QD
  3. OPSUMIT [Suspect]
     Active Substance: MACITENTAN
     Indication: PULMONARY HYPERTENSION
     Dosage: 10 MG, QD
     Route: 048
     Dates: start: 20150803
  4. ADCIRCA [Concomitant]
     Active Substance: TADALAFIL
     Dosage: 40 MG, QD
     Dates: start: 201008
  5. LASIX [Concomitant]
     Active Substance: FUROSEMIDE
     Dosage: 40 MG, BID
     Dates: start: 201607
  6. COUMADIN [Concomitant]
     Active Substance: WARFARIN SODIUM
     Dosage: 4 MG, QD
     Dates: start: 201607

REACTIONS (3)
  - Pulmonary hypertension [Unknown]
  - Pyrexia [Recovered/Resolved]
  - Atrial flutter [Recovered/Resolved]

NARRATIVE: CASE EVENT DATE: 20160716
